FAERS Safety Report 11348178 (Version 1)
Quarter: 2015Q3

REPORT INFORMATION
  Report Type: Report from Study
  Country: CZ (occurrence: CZ)
  Receive Date: 20150806
  Receipt Date: 20150806
  Transmission Date: 20151125
  Serious: Yes (Other)
  Sender: FDA-Public Use
  Company Number: CZ-TEVA-582699ISR

PATIENT
  Age: 21 Year
  Sex: Male

DRUGS (14)
  1. LEVOMEPROMAZINE [Concomitant]
     Active Substance: LEVOMEPROMAZINE
     Dosage: 100 MILLIGRAM DAILY;
  2. QUETIAPINE [Suspect]
     Active Substance: QUETIAPINE
     Dosage: 800 MILLIGRAM DAILY;
  3. FLUPENTIXOL [Concomitant]
     Active Substance: FLUPENTIXOL
  4. FLUPHENAZINE [Concomitant]
     Active Substance: FLUPHENAZINE
  5. LEVOMEPROMAZINE [Concomitant]
     Active Substance: LEVOMEPROMAZINE
     Dosage: 200 MILLIGRAM DAILY;
  6. OLANZAPINE. [Suspect]
     Active Substance: OLANZAPINE
     Dosage: 10 MILLIGRAM DAILY;
  7. HALOPERIDOLE [Concomitant]
  8. HALOPERIDOLE [Concomitant]
     Dosage: 9 MILLIGRAM DAILY;
  9. FLUPENTIXOL [Concomitant]
     Active Substance: FLUPENTIXOL
  10. OLANZAPINE. [Suspect]
     Active Substance: OLANZAPINE
     Dosage: 20 MILLIGRAM DAILY;
  11. HALOPERIDOLE [Concomitant]
     Dosage: 4.5 MILLIGRAM DAILY;
  12. LEVOMEPROMAZINE [Concomitant]
     Active Substance: LEVOMEPROMAZINE
     Dosage: 225 MILLIGRAM DAILY;
  13. QUETIAPINE [Suspect]
     Active Substance: QUETIAPINE
     Dosage: 600 MILLIGRAM DAILY;
  14. FLUPHENAZINE [Concomitant]
     Active Substance: FLUPHENAZINE

REACTIONS (6)
  - Drug abuse [Unknown]
  - Alcohol abuse [Unknown]
  - Dystonia [Unknown]
  - Dyskinesia [Unknown]
  - Weight increased [Unknown]
  - Sedation [Unknown]
